FAERS Safety Report 8492286-1 (Version None)
Quarter: 2012Q3

REPORT INFORMATION
  Report Type: 
  Country: None (occurrence: None)
  Receive Date: 20120706
  Receipt Date: 20120702
  Transmission Date: 20120928
  Serious: Yes (Other)
  Sender: FDA-Public Use
  Company Number: CA-ROCHE-1083999

PATIENT
  Sex: Female

DRUGS (8)
  1. PROVERA [Concomitant]
     Route: 048
     Dates: start: 20090101
  2. PEGASYS [Suspect]
     Indication: HEPATITIS C
     Route: 058
  3. BI 201335 (HCV PROTEASE INHIBITOR) [Suspect]
     Indication: HEPATITIS C
     Route: 048
     Dates: start: 20120529
  4. IBUPROFEN (ADVIL) [Concomitant]
     Indication: ARTHRALGIA
     Route: 048
     Dates: start: 20060101
  5. IBUPROFEN (ADVIL) [Concomitant]
     Indication: OSTEOARTHRITIS
  6. COPEGUS [Suspect]
     Indication: HEPATITIS C
     Route: 048
  7. BI 207127 [Suspect]
     Indication: HEPATITIS C
  8. PREMARIN [Concomitant]
     Route: 048
     Dates: start: 20090101

REACTIONS (1)
  - ACUTE FEBRILE NEUTROPHILIC DERMATOSIS [None]
